FAERS Safety Report 8849405 (Version 1)
Quarter: 2012Q4

REPORT INFORMATION
  Report Type: Spontaneous
  Country: US (occurrence: None)
  Receive Date: 20121017
  Receipt Date: 20121017
  Transmission Date: 20130627
  Serious: Yes (Other)
  Sender: FDA-Public Use
  Company Number: KV2012000204

PATIENT
  Sex: Female

DRUGS (1)
  1. MAKENA [Suspect]
     Indication: PREMATURE DELIVERY
     Route: 030
     Dates: start: 2012, end: 2012

REACTIONS (3)
  - Premature separation of placenta [None]
  - Foetal malpresentation [None]
  - Caesarean section [None]
